FAERS Safety Report 13694041 (Version 13)
Quarter: 2019Q1

REPORT INFORMATION
  Report Type: Report from Study
  Country: IT (occurrence: IT)
  Receive Date: 20170627
  Receipt Date: 20190207
  Transmission Date: 20190417
  Serious: Yes (Other)
  Sender: FDA-Public Use
  Company Number: IT-AMGEN-ITANI2017094936

PATIENT
  Age: 63 Year
  Sex: Male
  Weight: 88 kg

DRUGS (1)
  1. PANITUMUMAB [Suspect]
     Active Substance: PANITUMUMAB
     Indication: COLORECTAL CANCER METASTATIC
     Dosage: UNK
     Route: 065
     Dates: start: 20170403

REACTIONS (32)
  - Thrombocytopenia [Recovered/Resolved]
  - Onychomycosis [Recovered/Resolved]
  - Rash [Recovered/Resolved]
  - Nausea [Recovered/Resolved]
  - Dyspepsia [Unknown]
  - Back pain [Recovered/Resolved]
  - Mucosal inflammation [Recovered/Resolved]
  - Skin toxicity [Recovered/Resolved]
  - Skin reaction [Unknown]
  - Pruritus [Recovered/Resolved]
  - Haematuria [Recovered/Resolved]
  - Musculoskeletal pain [Recovered/Resolved]
  - Paraesthesia [Recovering/Resolving]
  - Dermatitis [Recovering/Resolving]
  - Oedema [Recovering/Resolving]
  - Oral disorder [Recovered/Resolved]
  - Weight increased [Recovered/Resolved]
  - Muscle spasms [Recovering/Resolving]
  - Decreased appetite [Recovered/Resolved]
  - Neuropathy peripheral [Recovered/Resolved]
  - Cystitis haemorrhagic [Recovered/Resolved]
  - Abdominal pain lower [Recovered/Resolved]
  - Dizziness [Recovered/Resolved]
  - Diarrhoea [Recovered/Resolved]
  - Bowel movement irregularity [Recovered/Resolved]
  - Flatulence [Recovered/Resolved]
  - Impaired gastric emptying [Recovered/Resolved]
  - Asthenia [Recovering/Resolving]
  - Weight decreased [Recovered/Resolved]
  - Proteinuria [Recovered/Resolved]
  - Anaemia [Recovering/Resolving]
  - Pyrexia [Recovered/Resolved]

NARRATIVE: CASE EVENT DATE: 20170403
